FAERS Safety Report 7208645-0 (Version None)
Quarter: 2011Q1

REPORT INFORMATION
  Report Type: 
  Country: None (occurrence: None)
  Receive Date: 20110104
  Receipt Date: 20101124
  Transmission Date: 20110831
  Serious: Yes (Other)
  Sender: FDA-Public Use
  Company Number: US-BAXTER-2010BH007378

PATIENT
  Age: 24 Year
  Sex: Female
  Weight: 93 kg

DRUGS (30)
  1. HEPARIN SODIUM INJECTION [Suspect]
     Route: 058
     Dates: start: 20080507, end: 20080508
  2. METHERGINE [Concomitant]
     Indication: PRODUCT USED FOR UNKNOWN INDICATION
     Route: 048
     Dates: start: 20080101
  3. DEXTROSE [Concomitant]
     Indication: MEDICATION DILUTION
     Route: 041
     Dates: start: 20080203, end: 20080210
  4. NAPROSYN [Concomitant]
     Indication: PRODUCT USED FOR UNKNOWN INDICATION
     Route: 048
  5. HEPARIN SODIUM INJECTION [Suspect]
     Route: 042
     Dates: start: 20080204, end: 20080204
  6. MORPHINE [Concomitant]
     Indication: PRODUCT USED FOR UNKNOWN INDICATION
     Route: 065
  7. NORMAL SALINE [Concomitant]
     Indication: PRODUCT USED FOR UNKNOWN INDICATION
     Route: 042
  8. HEPARIN SODIUM INJECTION [Suspect]
     Route: 041
     Dates: start: 20080203, end: 20080210
  9. HEPARIN SODIUM INJECTION [Suspect]
     Route: 042
     Dates: start: 20080203, end: 20080203
  10. HEPARIN SODIUM INJECTION [Suspect]
     Route: 042
     Dates: start: 20080204, end: 20080204
  11. MAGNESIUM CITRATE [Concomitant]
     Indication: PRODUCT USED FOR UNKNOWN INDICATION
     Route: 048
  12. HEPARIN SODIUM INJECTION [Suspect]
     Indication: PROPHYLAXIS
     Route: 040
     Dates: start: 20080203, end: 20080203
  13. HEPARIN SODIUM 5,000 UNITS IN DEXTROSE 5% [Suspect]
     Indication: PULMONARY EMBOLISM
     Route: 042
     Dates: start: 20080203, end: 20080210
  14. PRILOSEC [Concomitant]
     Indication: PRODUCT USED FOR UNKNOWN INDICATION
     Route: 048
  15. VICODIN [Concomitant]
     Indication: PRODUCT USED FOR UNKNOWN INDICATION
     Route: 048
  16. HEPARIN SODIUM INJECTION [Suspect]
     Indication: DEEP VEIN THROMBOSIS
     Route: 040
     Dates: start: 20080203, end: 20080203
  17. HEPARIN SODIUM INJECTION [Suspect]
     Route: 041
     Dates: start: 20080203, end: 20080210
  18. HEPARIN SODIUM INJECTION [Suspect]
     Route: 058
     Dates: start: 20080507, end: 20080508
  19. ACETAMINOPHEN [Concomitant]
     Indication: PRODUCT USED FOR UNKNOWN INDICATION
     Route: 048
  20. HEPARIN SODIUM INJECTION [Suspect]
     Route: 042
     Dates: start: 20080203, end: 20080203
  21. HEPARIN SODIUM INJECTION [Suspect]
     Route: 041
     Dates: start: 20080203, end: 20080210
  22. HEPARIN SODIUM INJECTION [Suspect]
     Route: 058
     Dates: start: 20080507, end: 20080508
  23. HEPARIN SODIUM INJECTION [Suspect]
     Route: 042
     Dates: start: 20080203, end: 20080203
  24. HEPARIN SODIUM INJECTION [Suspect]
     Route: 042
     Dates: start: 20080204, end: 20080204
  25. TETRACYCLINE HYDROCHLORIDE [Concomitant]
     Indication: PRODUCT USED FOR UNKNOWN INDICATION
     Route: 048
     Dates: start: 20080101
  26. TORADOL [Concomitant]
     Indication: PRODUCT USED FOR UNKNOWN INDICATION
     Route: 042
  27. HEPARIN SODIUM INJECTION [Suspect]
     Indication: PULMONARY EMBOLISM
     Route: 040
     Dates: start: 20080203, end: 20080203
  28. CELEBREX [Concomitant]
     Indication: PRODUCT USED FOR UNKNOWN INDICATION
     Route: 048
     Dates: start: 20080101
  29. WARFARIN [Concomitant]
     Indication: PRODUCT USED FOR UNKNOWN INDICATION
     Route: 048
  30. DILAUDID [Concomitant]
     Indication: PRODUCT USED FOR UNKNOWN INDICATION
     Route: 042

REACTIONS (14)
  - MUSCLE SPASMS [None]
  - ASTHENIA [None]
  - CONSTIPATION [None]
  - MUSCLE TIGHTNESS [None]
  - VISION BLURRED [None]
  - DYSPHAGIA [None]
  - DYSPNOEA [None]
  - PARAESTHESIA [None]
  - HEADACHE [None]
  - ABDOMINAL DISCOMFORT [None]
  - CHEST PAIN [None]
  - ABDOMINAL PAIN [None]
  - HYPOAESTHESIA [None]
  - ATELECTASIS [None]
